FAERS Safety Report 4382556-0 (Version None)
Quarter: 2004Q2

REPORT INFORMATION
  Report Type: 
  Country: None (occurrence: None)
  Receive Date: 20040617
  Receipt Date: 20040601
  Transmission Date: 20050107
  Serious: Yes (Hospitalization)
  Sender: FDA-Public Use
  Company Number: F01200401286

PATIENT
  Age: 76 Year
  Sex: Male

DRUGS (6)
  1. OXALIPLATIN - SOLUTION - 230 MG [Suspect]
     Indication: COLORECTAL CANCER METASTATIC
     Dosage: 230 MG Q3W
     Route: 042
     Dates: start: 20040517, end: 20040517
  2. CAPECITABINE - TABLET - 1000 MG/M2 [Suspect]
     Dosage: 1000 MG/M2 TWICE DAILY FROM DAY 1 TO DAY 15, Q3W, ORAL
     Route: 048
     Dates: start: 20040517, end: 20040517
  3. ORALDINE (HEXETIDINE) [Concomitant]
  4. MYCOSTATIN [Concomitant]
  5. MOTILIUM [Concomitant]
  6. AAS (ACETYLSALICYLIC ACID) [Concomitant]

REACTIONS (3)
  - DIARRHOEA [None]
  - RENAL FAILURE ACUTE [None]
  - VOMITING [None]
